FAERS Safety Report 4646627-3 (Version None)
Quarter: 2005Q2

REPORT INFORMATION
  Report Type: 
  Country: None (occurrence: None)
  Receive Date: 20050427
  Receipt Date: 20050422
  Transmission Date: 20051028
  Serious: Yes (Hospitalization, Other)
  Sender: FDA-Public Use
  Company Number: PHBS2005CH05818

PATIENT
  Age: 91 Year
  Sex: Female

DRUGS (4)
  1. CO-DIOVAN [Suspect]
     Indication: HYPERTENSION
     Dosage: 160 VALS - 25 HCTZ MG/DAY
     Route: 048
     Dates: end: 20050224
  2. IBUPROFEN [Suspect]
     Indication: PAIN IN EXTREMITY
     Dosage: 1200 MG/DAY
     Dates: end: 20050224
  3. ASPIRIN [Concomitant]
     Dosage: 100 MG/DAY
     Dates: end: 20050224
  4. DAFALGAN [Concomitant]

REACTIONS (8)
  - ANAEMIA [None]
  - GASTROINTESTINAL HAEMORRHAGE [None]
  - HYPOCALCAEMIA [None]
  - HYPOCHLORAEMIA [None]
  - HYPONATRAEMIA [None]
  - INAPPROPRIATE ANTIDIURETIC HORMONE SECRETION [None]
  - MELAENA [None]
  - URINE POTASSIUM DECREASED [None]
